FAERS Safety Report 20981419 (Version 1)
Quarter: 2022Q2

REPORT INFORMATION
  Report Type: Spontaneous
  Country: US (occurrence: US)
  Receive Date: 20220620
  Receipt Date: 20220620
  Transmission Date: 20220721
  Serious: No
  Sender: FDA-Public Use
  Company Number: US-PFIZER INC-202200843269

PATIENT
  Age: 13 Year
  Sex: Male

DRUGS (1)
  1. VIBRAMYCIN [Suspect]
     Active Substance: DOXYCYCLINE
     Indication: Lyme disease
     Dosage: UNK

REACTIONS (4)
  - Dysphagia [Unknown]
  - Dysgeusia [Unknown]
  - Therapeutic product effect incomplete [Unknown]
  - Circumstance or information capable of leading to medication error [Unknown]
